FAERS Safety Report 5235240-5 (Version None)
Quarter: 2007Q1

REPORT INFORMATION
  Report Type: 
  Country: None (occurrence: None)
  Receive Date: 20070212
  Receipt Date: 20070130
  Transmission Date: 20070707
  Serious: Yes (Hospitalization, Disabling)
  Sender: FDA-Public Use
  Company Number: PHHO2006JP17580

PATIENT
  Age: 56 Year
  Sex: Female

DRUGS (4)
  1. PERDIPINE [Concomitant]
     Indication: HYPERTENSION
     Dosage: 40 MG, UNK
     Route: 048
     Dates: start: 19991027, end: 20060227
  2. THYRADIN S [Concomitant]
     Indication: HYPERTHYROIDISM
     Route: 048
     Dates: start: 19991027, end: 20060227
  3. MEVALOTIN [Concomitant]
     Indication: HYPERCHOLESTEROLAEMIA
     Route: 048
     Dates: start: 20021023, end: 20060227
  4. DIOVAN [Suspect]
     Indication: HYPERTENSION
     Dosage: 40 MG, QD
     Route: 048
     Dates: start: 20030305, end: 20060227

REACTIONS (8)
  - CEREBRAL DECOMPRESSION [None]
  - DEPRESSED LEVEL OF CONSCIOUSNESS [None]
  - HEADACHE [None]
  - HEMIPLEGIA [None]
  - INTRA-CEREBRAL ANEURYSM OPERATION [None]
  - RESPIRATORY DISORDER [None]
  - SUBARACHNOID HAEMORRHAGE [None]
  - VENTRICULO-PERITONEAL SHUNT [None]
